FAERS Safety Report 4481773-9 (Version None)
Quarter: 2004Q4

REPORT INFORMATION
  Report Type: 
  Country: None (occurrence: None)
  Receive Date: 20041021
  Receipt Date: 20041015
  Transmission Date: 20050328
  Serious: Yes (Life-Threatening, Hospitalization, Other)
  Sender: FDA-Public Use
  Company Number: US-MERCK-0410USA02377

PATIENT
  Age: 65 Year
  Sex: Male

DRUGS (3)
  1. VIOXX [Suspect]
     Indication: KNEE ARTHROPLASTY
     Route: 048
  2. VIOXX [Suspect]
     Indication: HIP ARTHROPLASTY
     Route: 048
  3. [THERAPY UNSPECIFIED] [Concomitant]
     Route: 065

REACTIONS (2)
  - CEREBROVASCULAR ACCIDENT [None]
  - MYOCARDIAL INFARCTION [None]
